FAERS Safety Report 9849118 (Version 1)
Quarter: 2014Q1

REPORT INFORMATION
  Report Type: Spontaneous
  Country: JP (occurrence: JP)
  Receive Date: 20140128
  Receipt Date: 20140128
  Transmission Date: 20141002
  Serious: Yes (Other)
  Sender: FDA-Public Use
  Company Number: PHHY2014JP009638

PATIENT
  Sex: Female

DRUGS (1)
  1. DIOVAN [Suspect]
     Dosage: UNK UKN, UNK
     Route: 048

REACTIONS (5)
  - Dermatitis [Recovering/Resolving]
  - Erythema [Recovering/Resolving]
  - Scar [Not Recovered/Not Resolved]
  - Skin erosion [Unknown]
  - Dry skin [Unknown]
